FAERS Safety Report 11867046 (Version 1)
Quarter: 2015Q4

REPORT INFORMATION
  Report Type: Spontaneous
  Country: None (occurrence: None)
  Receive Date: 20151223
  Receipt Date: 20151223
  Transmission Date: 20160305
  Serious: Yes (Death)
  Sender: FDA-Public Use
  Company Number: None

PATIENT
  Age: 69 Year
  Sex: Male

DRUGS (3)
  1. CLOPIDOGREL [Suspect]
     Active Substance: CLOPIDOGREL BISULFATE
     Indication: THROMBOSIS
     Dates: start: 201502, end: 201512
  2. ASPIRIN 81 MG [Suspect]
     Active Substance: ASPIRIN
     Indication: THROMBOSIS
     Dates: start: 201502, end: 201512
  3. WARFARIN [Suspect]
     Active Substance: WARFARIN

REACTIONS (5)
  - Headache [None]
  - Brain stem haemorrhage [None]
  - Cardiac arrest [None]
  - Cerebral haemorrhage [None]
  - Loss of consciousness [None]

NARRATIVE: CASE EVENT DATE: 20151221
